FAERS Safety Report 21614636 (Version 6)
Quarter: 2023Q1

REPORT INFORMATION
  Report Type: Report from Study
  Country: FR (occurrence: FR)
  Receive Date: 20221118
  Receipt Date: 20230228
  Transmission Date: 20230417
  Serious: Yes (Hospitalization)
  Sender: FDA-Public Use
  Company Number: FR-ARGENX-2022-ARGX-FR002396

PATIENT
  Age: 76 Year
  Sex: Male
  Weight: 86 kg

DRUGS (21)
  1. EFGARTIGIMOD ALFA [Suspect]
     Active Substance: EFGARTIGIMOD ALFA
     Indication: Pemphigus
     Dates: start: 20221012
  2. PREDNISONE [Suspect]
     Active Substance: PREDNISONE
     Indication: Pemphigus
     Dosage: 45 MG, DAILY
     Route: 048
     Dates: start: 20221012
  3. PREDNISONE [Suspect]
     Active Substance: PREDNISONE
     Dosage: 85 MG, DAILY
     Route: 048
     Dates: start: 20221107
  4. PREDNISOLONE [Suspect]
     Active Substance: PREDNISOLONE
     Indication: Pemphigus
     Dosage: UNK
     Route: 065
  5. PERINDOPRIL [Concomitant]
     Active Substance: PERINDOPRIL
     Indication: Hypertension
     Dosage: 8 MG, DAILY
     Route: 048
     Dates: start: 2007
  6. Calcidose vit D3 [Concomitant]
     Indication: Vitamin D deficiency
     Dosage: 500 MG, DAILY
     Route: 048
     Dates: start: 2021
  7. RIVOTRIL [Concomitant]
     Active Substance: CLONAZEPAM
     Indication: Myoclonus
     Dosage: 15 MG, DAILY
     Route: 048
     Dates: start: 2017
  8. LANSOPRAZOLE [Concomitant]
     Active Substance: LANSOPRAZOLE
     Indication: Gastrooesophageal reflux disease
     Dosage: 15 MG, DAILY
     Route: 048
     Dates: start: 2021
  9. ALFUZOSIN HYDROCHLORIDE [Concomitant]
     Active Substance: ALFUZOSIN HYDROCHLORIDE
     Indication: Benign prostatic hyperplasia
     Dosage: 10 MG, DAILY
     Route: 048
     Dates: start: 2019
  10. LUMIGAN [Concomitant]
     Active Substance: BIMATOPROST
     Indication: Glaucoma
     Dosage: 1 GTT, DAILY
     Dates: start: 1982
  11. COMBIGAN [Concomitant]
     Active Substance: BRIMONIDINE TARTRATE\TIMOLOL MALEATE
     Indication: Glaucoma
     Dosage: 2 GTT, DAILY
     Dates: start: 1982
  12. TRUSOPT [Concomitant]
     Active Substance: DORZOLAMIDE HYDROCHLORIDE
     Indication: Glaucoma
     Dosage: 2 DROPS, DAILY
     Dates: start: 1982
  13. LERCANIDIPINE [Concomitant]
     Active Substance: LERCANIDIPINE
     Indication: Hypertension
     Dosage: 20 MG, DAILY
     Route: 048
     Dates: start: 2007
  14. HERBALS\SAW PALMETTO [Concomitant]
     Active Substance: HERBALS\SAW PALMETTO
     Indication: Benign prostatic hyperplasia
     Dosage: 160 MG, BID
     Route: 048
     Dates: start: 2019
  15. TROSPIUM CHLORIDE [Concomitant]
     Active Substance: TROSPIUM CHLORIDE
     Indication: Urinary incontinence
     Dosage: 20 MG, DAILY
     Route: 048
     Dates: start: 2021
  16. DESONIDE [Concomitant]
     Active Substance: DESONIDE
     Indication: Pemphigus
     Dosage: 1 APPLICATION, DAILY
     Route: 061
     Dates: start: 20221104
  17. FUROSEMIDE [Concomitant]
     Active Substance: FUROSEMIDE
     Indication: Oedema peripheral
     Dosage: 40 MG, DAILY
     Route: 048
     Dates: start: 20221012
  18. Dalacin [Concomitant]
     Indication: Skin lesion
     Dosage: UNK
     Dates: start: 20221027
  19. Dalacin [Concomitant]
     Indication: Infection
  20. Dermoval [Concomitant]
     Indication: Skin lesion
     Dosage: UNK
     Dates: start: 20221104
  21. DESONIDE [Concomitant]
     Active Substance: DESONIDE
     Indication: Skin lesion
     Dosage: UNK
     Dates: start: 20221104

REACTIONS (2)
  - Drug eruption [Recovered/Resolved]
  - Disease progression [Not Recovered/Not Resolved]

NARRATIVE: CASE EVENT DATE: 20221107
